FAERS Safety Report 20293121 (Version 1)
Quarter: 2022Q1

REPORT INFORMATION
  Report Type: Spontaneous
  Country: FR (occurrence: FR)
  Receive Date: 20220104
  Receipt Date: 20220104
  Transmission Date: 20220423
  Serious: Yes (Other)
  Sender: FDA-Public Use
  Company Number: FR-ROCHE-2981205

PATIENT
  Age: 68 Year
  Sex: Female

DRUGS (4)
  1. MVASI [Suspect]
     Active Substance: BEVACIZUMAB-AWWB
     Indication: Ovarian cancer
     Dosage: UNK (RECEIVED LAST DOSE OF BEVACIZUMAB BEFORE THE EVENT ON 02/AUG/2018)
     Route: 042
     Dates: start: 20170516
  2. OLAPARIB [Suspect]
     Active Substance: OLAPARIB
     Indication: Ovarian cancer
     Dosage: UNK (RECEIVED LAST DOSE OF OLAPARIB BEFORE THE EVENT ON 08/JUN/2019)
     Route: 042
     Dates: start: 20170721, end: 20190608
  3. OLAPARIB [Suspect]
     Active Substance: OLAPARIB
     Indication: Endometrial cancer
  4. NIRAPARIB [Concomitant]
     Active Substance: NIRAPARIB
     Indication: Ovarian cancer
     Dosage: UNK
     Route: 048
     Dates: start: 20191226

REACTIONS (1)
  - Basal cell carcinoma [Recovered/Resolved]

NARRATIVE: CASE EVENT DATE: 20201124
